FAERS Safety Report 22643526 (Version 1)
Quarter: 2023Q2

REPORT INFORMATION
  Report Type: Spontaneous
  Country: PT (occurrence: PT)
  Receive Date: 20230627
  Receipt Date: 20230627
  Transmission Date: 20230721
  Serious: Yes (Disabling)
  Sender: FDA-Public Use
  Company Number: None

PATIENT
  Age: 77 Year
  Sex: Female
  Weight: 75 kg

DRUGS (7)
  1. EZETIMIBE [Suspect]
     Active Substance: EZETIMIBE
     Indication: Dyslipidaemia
     Dosage: 10 MG, Q24H (1 COMP/DIA)
     Route: 048
     Dates: start: 20230501, end: 20230523
  2. DAFLON [Concomitant]
     Indication: Product used for unknown indication
     Dosage: UNK
     Route: 048
  3. ONDOLEN FORTE [Concomitant]
     Indication: Product used for unknown indication
     Dosage: UNK (1/2 COMP./DIA JEJUM)
     Route: 048
  4. ZOLOFT [Concomitant]
     Active Substance: SERTRALINE HYDROCHLORIDE
     Indication: Product used for unknown indication
     Dosage: 50 MG, Q24H
     Route: 048
  5. CITICOLINE [Concomitant]
     Active Substance: CITICOLINE
     Indication: Product used for unknown indication
     Dosage: UNK
     Route: 065
  6. LETTER [Concomitant]
     Indication: Product used for unknown indication
     Dosage: 0.1 MG, Q24H (1X/DIA JEJUM)
     Route: 048
  7. BISOPROLOL FUMARATE [Concomitant]
     Active Substance: BISOPROLOL FUMARATE
     Indication: Product used for unknown indication
     Dosage: 5 MG, Q24H (1X/DIA EM JEJUM)
     Route: 048

REACTIONS (15)
  - Blood pressure fluctuation [Recovered/Resolved]
  - Palatal swelling [Recovered/Resolved]
  - Chromaturia [Recovered/Resolved]
  - Vomiting [Recovered/Resolved]
  - Swelling [Recovered/Resolved]
  - Joint swelling [Recovered/Resolved]
  - Rash macular [Recovered/Resolved]
  - Arthralgia [Recovered/Resolved]
  - Peripheral swelling [Recovered/Resolved]
  - Gastrooesophageal reflux disease [Recovered/Resolved]
  - Asthenia [Recovered/Resolved]
  - Peripheral swelling [Recovered/Resolved]
  - Decreased appetite [Recovered/Resolved]
  - Cough [Recovered/Resolved]
  - Pruritus [Recovered/Resolved]

NARRATIVE: CASE EVENT DATE: 20230501
